FAERS Safety Report 15795025 (Version 1)
Quarter: 2019Q1

REPORT INFORMATION
  Report Type: Spontaneous
  Country: US (occurrence: US)
  Receive Date: 20190107
  Receipt Date: 20190107
  Transmission Date: 20190417
  Serious: Yes (Death, Hospitalization, Other)
  Sender: FDA-Public Use
  Company Number: US-BRISTOL-MYERS SQUIBB COMPANY-BMS-2018-122189

PATIENT
  Age: 34 Year
  Sex: Male

DRUGS (12)
  1. 3TC [Concomitant]
     Active Substance: LAMIVUDINE
     Indication: ANTIRETROVIRAL THERAPY
     Dosage: UNK
     Route: 065
     Dates: start: 20161201
  2. DACLATASVIR DIHYDROCHLORIDE [Suspect]
     Active Substance: DACLATASVIR DIHYDROCHLORIDE
     Indication: HEPATITIS C
     Dosage: 1 DF, UNK
     Route: 065
     Dates: start: 20180703, end: 20180924
  3. MOXIFLOXACIN. [Suspect]
     Active Substance: MOXIFLOXACIN
     Indication: TUBERCULOSIS
     Dosage: 1 DF, QD
     Route: 065
     Dates: start: 20180514
  4. IMIPENEM [Suspect]
     Active Substance: IMIPENEM
     Indication: TUBERCULOSIS
     Dosage: 1 DF, QD
     Route: 065
     Dates: start: 20180514, end: 20181003
  5. AMOXICILLIN TRIHYDRATE AND CLAVULANATE POTASS [Suspect]
     Active Substance: AMOXICILLIN\CLAVULANATE POTASSIUM
     Indication: TUBERCULOSIS
     Dosage: 1 DF, QD
     Route: 065
     Dates: start: 20180514, end: 20181003
  6. ABACAVIR. [Concomitant]
     Active Substance: ABACAVIR
     Indication: ANTIRETROVIRAL THERAPY
     Dosage: UNK
     Route: 065
     Dates: start: 20061201
  7. NVP [Concomitant]
     Indication: ANTIRETROVIRAL THERAPY
     Dosage: UNK
     Route: 065
     Dates: start: 20161201
  8. SOFOSBUVIR [Suspect]
     Active Substance: SOFOSBUVIR
     Indication: HEPATITIS C
     Dosage: 1 DF, QD
     Route: 065
     Dates: start: 20180703, end: 20180924
  9. PROTIONAMIDE [Suspect]
     Active Substance: PROTIONAMIDE
     Indication: TUBERCULOSIS
     Dosage: 1 DF, QD
     Route: 065
     Dates: start: 20180514
  10. CLOFAZIMINE [Suspect]
     Active Substance: CLOFAZIMINE
     Indication: TUBERCULOSIS
     Dosage: 1 DF, QD
     Route: 065
     Dates: start: 20180514
  11. PYRIDOXINE [Concomitant]
     Active Substance: PYRIDOXINE
     Indication: PRODUCT USED FOR UNKNOWN INDICATION
     Dosage: 150 MG, UNK
     Route: 065
  12. DELAMANID [Suspect]
     Active Substance: DELAMANID
     Indication: TUBERCULOSIS
     Dosage: 1 DF, QD
     Route: 065
     Dates: start: 20180514

REACTIONS (17)
  - Malaise [Unknown]
  - Vomiting [Unknown]
  - Blood pressure decreased [Unknown]
  - Neuropathy peripheral [Unknown]
  - Gastritis [Not Recovered/Not Resolved]
  - Platelet count increased [Unknown]
  - Iridocyclitis [Unknown]
  - Oral candidiasis [Unknown]
  - Alanine aminotransferase increased [Unknown]
  - Duodenitis [Not Recovered/Not Resolved]
  - Aspartate aminotransferase increased [Unknown]
  - Blindness [Unknown]
  - Cachexia [Unknown]
  - Nausea [Unknown]
  - HIV infection [Fatal]
  - Oesophagitis [Not Recovered/Not Resolved]
  - Gamma-glutamyltransferase increased [Unknown]

NARRATIVE: CASE EVENT DATE: 20181001
